FAERS Safety Report 5347246-6 (Version None)
Quarter: 2007Q2

REPORT INFORMATION
  Report Type: 
  Country: None (occurrence: None)
  Receive Date: 20070606
  Receipt Date: 20070528
  Transmission Date: 20071010
  Serious: Yes (Other)
  Sender: FDA-Public Use
  Company Number: PHBS2007JP08999

PATIENT
  Age: 49 Year
  Sex: Male

DRUGS (5)
  1. MEVALOTIN [Suspect]
     Indication: HYPERLIPIDAEMIA
     Dosage: 10 MG/DAY
     Route: 048
  2. TAGAMET [Suspect]
     Dosage: 400 MG/DAY
     Route: 048
  3. ASPIRIN [Suspect]
     Indication: CEREBRAL INFARCTION
     Dosage: 100 MG/DAY
     Route: 048
  4. SERMION [Suspect]
     Dosage: 15 MG/DAY
     Route: 048
  5. LAMISIL [Suspect]
     Indication: NAIL TINEA
     Dosage: 125 MG/DAY
     Route: 048
     Dates: start: 20061228, end: 20070518

REACTIONS (1)
  - BLOOD CREATINE PHOSPHOKINASE INCREASED [None]
